FAERS Safety Report 8390682-4 (Version None)
Quarter: 2012Q2

REPORT INFORMATION
  Report Type: 
  Country: None (occurrence: None)
  Receive Date: 20120529
  Receipt Date: 20120521
  Transmission Date: 20120825
  Serious: Yes (Hospitalization)
  Sender: FDA-Public Use
  Company Number: PHHY2012IT043948

PATIENT
  Sex: Male

DRUGS (3)
  1. LORAZEPAM [Concomitant]
  2. LITHIUM CARBONATE [Concomitant]
     Indication: BIPOLAR DISORDER
  3. CIPROFLOXACIN [Suspect]
     Indication: URINARY TRACT INFECTION
     Dosage: 1000 MG DAILY
     Route: 048
     Dates: start: 20120227, end: 20120308

REACTIONS (6)
  - HEAD INJURY [None]
  - FALL [None]
  - WOUND [None]
  - TENDONITIS [None]
  - SPINAL COLUMN INJURY [None]
  - ASTHENIA [None]
